FAERS Safety Report 7376514-1 (Version None)
Quarter: 2011Q1

REPORT INFORMATION
  Report Type: 
  Country: None (occurrence: None)
  Receive Date: 20110317
  Receipt Date: 20110307
  Transmission Date: 20110831
  Serious: No
  Sender: FDA-Public Use
  Company Number: 2011-00088

PATIENT
  Age: 23 Year
  Sex: Female
  Weight: 67.1324 kg

DRUGS (1)
  1. ZICAM COLD REMEDY PLUS LIQUI-LOZ [Suspect]
     Dosage: AS DIRECTED X 5 DAYS
     Dates: start: 20110301, end: 20110305

REACTIONS (2)
  - AGEUSIA [None]
  - ANOSMIA [None]
